FAERS Safety Report 5008547-4 (Version None)
Quarter: 2006Q2

REPORT INFORMATION
  Report Type: 
  Country: None (occurrence: None)
  Receive Date: 20060518
  Receipt Date: 20060512
  Transmission Date: 20061013
  Serious: Yes (Hospitalization)
  Sender: FDA-Public Use
  Company Number: 200610109BVD

PATIENT
  Age: 73 Year
  Sex: Male

DRUGS (5)
  1. SORAFENIB [Suspect]
     Indication: RENAL CELL CARCINOMA STAGE UNSPECIFIED
     Dosage: 800 MG, TOTAL DAILY, ORAL
     Route: 048
     Dates: start: 20051031, end: 20060122
  2. TRENANTONE [Concomitant]
  3. NACL [Concomitant]
  4. GLUCOSE [Concomitant]
  5. SAB SIMPLEX [Concomitant]

REACTIONS (5)
  - CEREBRAL ARTERIOSCLEROSIS [None]
  - CEREBRAL ATROPHY [None]
  - CEREBRAL ISCHAEMIA [None]
  - HEMIPARESIS [None]
  - VASCULAR ENCEPHALOPATHY [None]
